FAERS Safety Report 4662999-8 (Version None)
Quarter: 2005Q2

REPORT INFORMATION
  Report Type: 
  Country: None (occurrence: None)
  Receive Date: 20050513
  Receipt Date: 20050503
  Transmission Date: 20051028
  Serious: Yes (Hospitalization)
  Sender: FDA-Public Use
  Company Number: BR-2005-007071

PATIENT
  Age: 48 Year
  Sex: Male

DRUGS (2)
  1. BETASERON [Suspect]
     Indication: MULTIPLE SCLEROSIS
     Dosage: 8 MIU SUBCUTANEOUS
     Route: 058
     Dates: start: 20050404, end: 20050401
  2. BETASERON [Suspect]
     Indication: MULTIPLE SCLEROSIS
     Dosage: 8 MIU SUBCUTANEOUS
     Route: 058
     Dates: start: 20040501

REACTIONS (1)
  - CARDIAC OPERATION [None]
